FAERS Safety Report 18926808 (Version 1)
Quarter: 2021Q1

REPORT INFORMATION
  Report Type: Spontaneous
  Country: FR (occurrence: FR)
  Receive Date: 20210223
  Receipt Date: 20210223
  Transmission Date: 20210420
  Serious: Yes (Other)
  Sender: FDA-Public Use
  Company Number: FR-ALK-ABELLO A/S-2021AA000609

PATIENT

DRUGS (2)
  1. INEXIUM                            /01479302/ [Concomitant]
     Active Substance: ESOMEPRAZOLE MAGNESIUM
     Indication: GASTRIC ULCER
     Dosage: 40 MILLIGRAM
  2. GRAZAX [Suspect]
     Active Substance: PHLEUM PRATENSE POLLEN
     Indication: IMMUNE TOLERANCE INDUCTION
     Dosage: UNK
     Route: 060
     Dates: start: 20210102, end: 20210213

REACTIONS (2)
  - Eye swelling [Not Recovered/Not Resolved]
  - Gastric ulcer [Not Recovered/Not Resolved]

NARRATIVE: CASE EVENT DATE: 2021
